FAERS Safety Report 15933122 (Version 1)
Quarter: 2019Q1

REPORT INFORMATION
  Report Type: Spontaneous
  Country: LT (occurrence: LT)
  Receive Date: 20190207
  Receipt Date: 20190207
  Transmission Date: 20190417
  Serious: Yes (Other)
  Sender: FDA-Public Use
  Company Number: LT-MYLANLABS-2019M1011190

PATIENT
  Sex: Female
  Weight: .59 kg

DRUGS (16)
  1. IBUPROFEN. [Suspect]
     Active Substance: IBUPROFEN
     Indication: PATENT DUCTUS ARTERIOSUS
     Dosage: UNK (FIRST COURSE WAS STARTED FOR THREE DAYS, SECOND COURSE DURATION IS UNSPECIFIED)
  2. DEXAMETHASONE. [Concomitant]
     Active Substance: DEXAMETHASONE
     Indication: EXTUBATION
     Dosage: UNK (A THREE-DAY COURSE) (STARTED 28 OF LIFE)
  3. CEFOTAXIME [Concomitant]
     Active Substance: CEFOTAXIME SODIUM
     Dosage: UNK (STARTED AFTER BIRTH)
  4. VITAMIN D                          /00107901/ [Concomitant]
     Active Substance: ERGOCALCIFEROL
     Dosage: 400 INTERNATIONAL UNIT, QD (STARTED DAY 12 OF LIFE)
  5. CAPTOPRIL. [Concomitant]
     Active Substance: CAPTOPRIL
     Indication: PULMONARY ARTERIAL HYPERTENSION
     Dosage: UNK (DAY 55 OF LIFE)
  6. SODIUM BICARBONATE. [Concomitant]
     Active Substance: SODIUM BICARBONATE
     Dosage: UNK
     Route: 042
  7. IBUPROFEN. [Suspect]
     Active Substance: IBUPROFEN
     Dosage: UNK (SECOND COURSE)
  8. GENTAMICIN. [Concomitant]
     Active Substance: GENTAMICIN
     Dosage: UNK (STARTED AFTER BIRTH)
  9. CALCIUM GLUCONATE. [Concomitant]
     Active Substance: CALCIUM GLUCONATE
     Dosage: UNK
     Route: 042
  10. POTASSIUM CITRATE. [Concomitant]
     Active Substance: POTASSIUM CITRATE
     Indication: NEPHROLITHIASIS
     Dosage: UNK
  11. AMIKACIN. [Concomitant]
     Active Substance: AMIKACIN
     Indication: SEPSIS
     Dosage: UNK (STARTED DAY 33 OF LIFE)
  12. GLUCOSE [Concomitant]
     Active Substance: DEXTROSE
     Dosage: UNK
     Route: 042
  13. PENICILLIN                         /00000901/ [Concomitant]
     Active Substance: PENICILLIN G
     Dosage: UNK (STARTED AFTER BIRTH)
  14. ELECTROLYTES NOS [Concomitant]
     Active Substance: ELECTROLYTES NOS
     Indication: ELECTROLYTE IMBALANCE
     Dosage: UNK (DAY 33 OF LIFE)
     Route: 042
  15. CEFUROXIME. [Concomitant]
     Active Substance: CEFUROXIME
     Indication: URINARY TRACT INFECTION
     Dosage: UNK (DAY 52 OF LIFE)
  16. FUROSEMIDE. [Concomitant]
     Active Substance: FUROSEMIDE
     Indication: POLYURIA
     Dosage: UNK UNK, ONCE

REACTIONS (3)
  - Off label use [Unknown]
  - Acute kidney injury [Recovered/Resolved]
  - Sepsis [Recovered/Resolved]
